FAERS Safety Report 4434314-6 (Version None)
Quarter: 2004Q3

REPORT INFORMATION
  Report Type: 
  Country: None (occurrence: None)
  Receive Date: 20040726
  Receipt Date: 20040226
  Transmission Date: 20050211
  Serious: No
  Sender: FDA-Public Use
  Company Number: US_0403101265

PATIENT
  Age: 69 Year
  Sex: Female

DRUGS (7)
  1. FORTEO [Suspect]
     Indication: OSTEOPOROSIS
     Dosage: 20 UG DAY
     Dates: start: 20031201
  2. CALCIUM [Concomitant]
  3. VERAPAMIL [Concomitant]
  4. REGLAN [Concomitant]
  5. POTASSIUM [Concomitant]
  6. LASIX [Concomitant]
  7. PREDNISONE [Concomitant]

REACTIONS (2)
  - BREAST TENDERNESS [None]
  - HYPERTROPHY BREAST [None]
